FAERS Safety Report 10613988 (Version 2)
Quarter: 2014Q4

REPORT INFORMATION
  Report Type: Spontaneous
  Country: JP (occurrence: JP)
  Receive Date: 20141128
  Receipt Date: 20141212
  Transmission Date: 20150529
  Serious: Yes (Life-Threatening, Other)
  Sender: FDA-Public Use
  Company Number: JP-BRISTOL-MYERS SQUIBB COMPANY-21645627

PATIENT
  Age: 56 Year
  Sex: Male

DRUGS (4)
  1. CALCIUM FOLINATE [Suspect]
     Active Substance: LEUCOVORIN CALCIUM
     Indication: APPENDIX CANCER
     Dosage: UNK
     Route: 041
     Dates: start: 20140313
  2. ERBITUX [Suspect]
     Active Substance: CETUXIMAB
     Indication: APPENDIX CANCER
     Dosage: UNK
     Route: 041
     Dates: start: 20140313
  3. FLUORO URACIL [Suspect]
     Active Substance: FLUOROURACIL
     Indication: APPENDIX CANCER
     Dosage: UNK
     Route: 041
     Dates: start: 20140313
  4. IRINOTECAN HCL [Suspect]
     Active Substance: IRINOTECAN HYDROCHLORIDE
     Indication: APPENDIX CANCER
     Dosage: UNK
     Route: 041
     Dates: start: 20140313, end: 20140911

REACTIONS (2)
  - Necrotising fasciitis [Recovering/Resolving]
  - Pancytopenia [Unknown]
